FAERS Safety Report 21452969 (Version 1)
Quarter: 2022Q4

REPORT INFORMATION
  Report Type: Report from Study
  Country: US (occurrence: None)
  Receive Date: 20221013
  Receipt Date: 20221013
  Transmission Date: 20230113
  Serious: Yes (Hospitalization, Other)
  Sender: FDA-Public Use
  Company Number: US-ROCHE-1843241

PATIENT
  Age: 80 Year
  Sex: Female

DRUGS (6)
  1. BEVACIZUMAB [Suspect]
     Active Substance: BEVACIZUMAB
     Indication: Breast cancer
     Dosage: LAST DOSE PRIOR TO SAE: 31/MAR/2009 OVER 30-90 MIN ON DAY 1
     Route: 042
     Dates: start: 20081125
  2. BEVACIZUMAB [Suspect]
     Active Substance: BEVACIZUMAB
     Dosage: LAST ADMINISTERED DATE WAS ON 28/JAN/2009
     Route: 042
     Dates: start: 20090128, end: 20090128
  3. TAMOXIFEN [Suspect]
     Active Substance: TAMOXIFEN
     Indication: Breast cancer
     Route: 048
     Dates: start: 20081125
  4. TAMOXIFEN [Suspect]
     Active Substance: TAMOXIFEN
     Route: 048
     Dates: start: 20090128
  5. LETROZOLE [Suspect]
     Active Substance: LETROZOLE
     Indication: Breast cancer
     Route: 048
     Dates: start: 20081125
  6. LETROZOLE [Suspect]
     Active Substance: LETROZOLE
     Route: 048
     Dates: start: 20090128

REACTIONS (3)
  - Hyperglycaemia [Unknown]
  - Angina pectoris [Unknown]
  - Non-cardiac chest pain [Unknown]

NARRATIVE: CASE EVENT DATE: 20090209
